FAERS Safety Report 7598711-2 (Version None)
Quarter: 2011Q3

REPORT INFORMATION
  Report Type: 
  Country: None (occurrence: None)
  Receive Date: 20110711
  Receipt Date: 20110630
  Transmission Date: 20111222
  Serious: Yes (Hospitalization)
  Sender: FDA-Public Use
  Company Number: US-BIOGENIDEC-2011BI023281

PATIENT
  Age: 62 Year
  Sex: Female

DRUGS (1)
  1. AVONEX [Suspect]
     Indication: MULTIPLE SCLEROSIS
     Route: 030
     Dates: start: 20110427

REACTIONS (9)
  - PRODUCTIVE COUGH [None]
  - INFLUENZA LIKE ILLNESS [None]
  - HAEMATEMESIS [None]
  - APHAGIA [None]
  - CONSTIPATION [None]
  - HYPERHIDROSIS [None]
  - ASTHENIA [None]
  - WEIGHT DECREASED [None]
  - VOMITING [None]
